FAERS Safety Report 24081473 (Version 1)
Quarter: 2024Q3

REPORT INFORMATION
  Report Type: Spontaneous
  Country: DE (occurrence: DE)
  Receive Date: 20240712
  Receipt Date: 20240712
  Transmission Date: 20241017
  Serious: Yes (Other)
  Sender: CSL BEHRING
  Company Number: None

PATIENT
  Age: 74 Year
  Sex: Male
  Weight: 92 kg

DRUGS (1)
  1. PRIVIGEN [Suspect]
     Active Substance: HUMAN IMMUNOGLOBULIN G
     Indication: Immunoglobulins decreased
     Dosage: 90 G EVERY 6 WEEKS
     Route: 042
     Dates: start: 20230208, end: 20240315

REACTIONS (6)
  - Hepatic cyst [Recovered/Resolved with Sequelae]
  - Abnormal faeces [Recovered/Resolved with Sequelae]
  - Urine odour abnormal [Recovered/Resolved with Sequelae]
  - Nasal odour [Recovered/Resolved with Sequelae]
  - Skin odour abnormal [Recovered/Resolved with Sequelae]
  - Therapy interrupted [Unknown]

NARRATIVE: CASE EVENT DATE: 20230201
